FAERS Safety Report 25769705 (Version 1)
Quarter: 2025Q3

REPORT INFORMATION
  Report Type: Spontaneous
  Country: US (occurrence: US)
  Receive Date: 20250906
  Receipt Date: 20250906
  Transmission Date: 20251020
  Serious: No
  Sender: SANOFI AVENTIS
  Company Number: US-SA-2025SA264597

PATIENT
  Age: 56 Year
  Sex: Female

DRUGS (2)
  1. DUPIXENT [Suspect]
     Active Substance: DUPILUMAB
     Indication: Dermatitis atopic
     Dosage: 300 MG, QOW
     Route: 058
     Dates: start: 202008
  2. NITROFURANTOIN [Concomitant]
     Active Substance: NITROFURANTOIN

REACTIONS (3)
  - Dermatitis atopic [Unknown]
  - Rash [Unknown]
  - Rebound effect [Unknown]

NARRATIVE: CASE EVENT DATE: 20250801
